FAERS Safety Report 4817240-X (Version None)
Quarter: 2005Q4

REPORT INFORMATION
  Report Type: 
  Country: None (occurrence: None)
  Receive Date: 20051101
  Receipt Date: 20051017
  Transmission Date: 20060501
  Serious: Yes (Other)
  Sender: FDA-Public Use
  Company Number: GBWYE061117OCT05

PATIENT
  Age: 28 Year
  Sex: Female
  Weight: 103 kg

DRUGS (6)
  1. ENBREL [Suspect]
     Indication: RHEUMATOID ARTHRITIS
     Route: 058
     Dates: start: 20050501
  2. METHOTREXATE [Suspect]
     Indication: RHEUMATOID ARTHRITIS
     Route: 048
  3. PREDNISOLONE [Concomitant]
     Dosage: UNKNOWN
  4. SULFASALAZINE [Concomitant]
     Dosage: UNKNOWN
  5. CELEBREX [Concomitant]
     Dosage: UNKNOWN
  6. UNSPECIFIED MEDICATION [Concomitant]
     Dosage: UNKNOWN

REACTIONS (2)
  - ABORTION SPONTANEOUS [None]
  - DRUG EXPOSURE DURING PREGNANCY [None]
